FAERS Safety Report 21886970 (Version 2)
Quarter: 2023Q1

REPORT INFORMATION
  Report Type: Spontaneous
  Country: US (occurrence: US)
  Receive Date: 20230119
  Receipt Date: 20230202
  Transmission Date: 20230417
  Serious: No
  Sender: FDA-Public Use
  Company Number: US-INSUD PHARMA-2301US00168

PATIENT

DRUGS (1)
  1. NUVESSA [Suspect]
     Active Substance: METRONIDAZOLE
     Indication: Bacterial vaginosis
     Dosage: UNK, ONE DOSE
     Route: 067
     Dates: start: 20230102, end: 20230102

REACTIONS (3)
  - Vulvovaginal erythema [Recovered/Resolved]
  - Vulvovaginal swelling [Recovered/Resolved]
  - Vulvovaginal burning sensation [Recovered/Resolved]

NARRATIVE: CASE EVENT DATE: 20230102
